FAERS Safety Report 8962847 (Version 1)
Quarter: 2012Q4

REPORT INFORMATION
  Report Type: 
  Country: AU (occurrence: AU)
  Receive Date: 20121214
  Receipt Date: 20121214
  Transmission Date: 20130627
  Serious: Yes (Other)
  Sender: FDA-Public Use
  Company Number: AU-PFIZER INC-2012276955

PATIENT
  Sex: Female

DRUGS (2)
  1. PRISTIQ [Suspect]
     Indication: DEPRESSION
     Dosage: 50 mg, UNK
     Route: 048
     Dates: start: 20120910, end: 20121016
  2. DEXAMPHETAMINE [Concomitant]
     Indication: ADHD
     Dosage: 2 tablets three times daily
     Route: 048

REACTIONS (3)
  - Oesophageal obstruction [Recovered/Resolved]
  - Vomiting [Recovered/Resolved]
  - Tablet physical issue [Unknown]
